FAERS Safety Report 14107707 (Version 3)
Quarter: 2018Q1

REPORT INFORMATION
  Report Type: Report from Study
  Country: BR (occurrence: BR)
  Receive Date: 20171019
  Receipt Date: 20180226
  Transmission Date: 20180508
  Serious: Yes (Hospitalization, Other)
  Sender: FDA-Public Use
  Company Number: BR-BRISTOL-MYERS SQUIBB COMPANY-BMS-2017-088415

PATIENT
  Age: 23 Year
  Sex: Female
  Weight: 56 kg

DRUGS (7)
  1. MICONAZOL [Concomitant]
     Active Substance: MICONAZOLE NITRATE
     Indication: VULVOVAGINAL CANDIDIASIS
     Dosage: UNK
     Route: 067
     Dates: start: 20170824, end: 20170831
  2. BETAMETHASONE. [Concomitant]
     Active Substance: BETAMETHASONE
     Indication: ABDOMINAL PAIN LOWER
     Dosage: UNK
     Route: 065
     Dates: start: 20170922, end: 20170923
  3. NIFEDIPINE. [Concomitant]
     Active Substance: NIFEDIPINE
     Indication: ABDOMINAL PAIN LOWER
     Dosage: UNK
     Route: 065
     Dates: start: 20170922, end: 20170923
  4. EFAVIRENZ. [Suspect]
     Active Substance: EFAVIRENZ
     Indication: HIV INFECTION
     Dosage: 600 MG, QD
     Route: 048
     Dates: start: 20170810
  5. LAMIVUDINE,ZIDOVUDINE [Suspect]
     Active Substance: LAMIVUDINE\ZIDOVUDINE
     Indication: HIV INFECTION
     Dosage: 450 MG, Q12H
     Route: 048
     Dates: start: 20170810
  6. FERROUS SULFATE. [Concomitant]
     Active Substance: FERROUS SULFATE
     Indication: ANAEMIA PROPHYLAXIS
     Dosage: UNK UNK, Q12H
     Route: 048
     Dates: end: 20170922
  7. BENZATHINE PENICILLIN [Concomitant]
     Active Substance: PENICILLIN G BENZATHINE
     Indication: SYPHILIS
     Dosage: 1 DF, UNK
     Route: 065
     Dates: start: 20170802, end: 20170816

REACTIONS (4)
  - Premature labour [Recovered/Resolved]
  - Vulvovaginal candidiasis [Unknown]
  - Maternal exposure during pregnancy [Recovered/Resolved]
  - Premature delivery [Unknown]

NARRATIVE: CASE EVENT DATE: 20170824
